FAERS Safety Report 10623399 (Version 3)
Quarter: 2017Q1

REPORT INFORMATION
  Report Type: Spontaneous
  Country: US (occurrence: US)
  Receive Date: 20141203
  Receipt Date: 20170217
  Transmission Date: 20170428
  Serious: Yes (Other)
  Sender: FDA-Public Use
  Company Number: US-ASTELLAS-2014US018498

PATIENT
  Sex: Male

DRUGS (3)
  1. PROGRAF [Suspect]
     Active Substance: TACROLIMUS\TACROLIMUS ANHYDROUS
     Indication: RENAL TRANSPLANT
     Dosage: UNK UNK, UNKNOWN FREQ.
     Route: 065
     Dates: start: 199903, end: 20141116
  2. PROGRAF [Suspect]
     Active Substance: TACROLIMUS\TACROLIMUS ANHYDROUS
     Indication: PANCREAS TRANSPLANT
  3. ASTAGRAF XL [Suspect]
     Active Substance: TACROLIMUS
     Indication: RENAL TRANSPLANT
     Route: 048
     Dates: start: 20141117, end: 20150915

REACTIONS (9)
  - Limb injury [Unknown]
  - Cough [Unknown]
  - Abdominal operation [Unknown]
  - Wrist fracture [Unknown]
  - Suture rupture [Unknown]
  - Off label use [Unknown]
  - Eye disorder [Unknown]
  - Surgery [Unknown]
  - Upper limb fracture [Not Recovered/Not Resolved]
